FAERS Safety Report 19463400 (Version 2)
Quarter: 2021Q2

REPORT INFORMATION
  Report Type: Spontaneous
  Country: AU (occurrence: AU)
  Receive Date: 20210625
  Receipt Date: 20210630
  Transmission Date: 20210717
  Serious: Yes (Life-Threatening, Other)
  Sender: FDA-Public Use
  Company Number: AU-ASTRAZENECA-2021A532265

PATIENT
  Age: 335 Month
  Sex: Female

DRUGS (3)
  1. SYMBICORT [Suspect]
     Active Substance: BUDESONIDE\FORMOTEROL FUMARATE DIHYDRATE
     Indication: ASTHMA
     Dosage: 200/6 1 PUFF TWICE A DAY
     Route: 055
     Dates: start: 2019, end: 202105
  2. LORATADINE. [Concomitant]
     Active Substance: LORATADINE
     Indication: SEASONAL ALLERGY
     Dosage: 1 PER DAY
     Dates: start: 202009
  3. MIRENA [Concomitant]
     Active Substance: LEVONORGESTREL
     Dates: start: 201911

REACTIONS (4)
  - Device delivery system issue [Unknown]
  - Illness [Unknown]
  - Device use issue [Unknown]
  - Drug ineffective [Unknown]

NARRATIVE: CASE EVENT DATE: 202104
